FAERS Safety Report 20748221 (Version 1)
Quarter: 2022Q2

REPORT INFORMATION
  Report Type: Spontaneous
  Country: US (occurrence: US)
  Receive Date: 20220426
  Receipt Date: 20220426
  Transmission Date: 20220721
  Serious: No
  Sender: FDA-Public Use
  Company Number: US-JNJFOC-20220443689

PATIENT
  Age: 50 Year
  Sex: Female

DRUGS (3)
  1. BOSENTAN [Suspect]
     Active Substance: BOSENTAN
     Indication: Pulmonary arterial hypertension
     Route: 048
  2. REMODULIN [Suspect]
     Active Substance: TREPROSTINIL
     Indication: Product used for unknown indication
     Dosage: PUMP RATE 43ML/24HR AND USING 8 ML REMODULIN 10 MG/ML EVERY 48 HOURS
     Route: 042
     Dates: start: 200607
  3. REMODULIN [Suspect]
     Active Substance: TREPROSTINIL
     Dosage: PUMP RATE 44 ML/24HR
     Route: 042
     Dates: start: 20220408

REACTIONS (1)
  - Dyspnoea [Unknown]

NARRATIVE: CASE EVENT DATE: 20220401
